FAERS Safety Report 8796097 (Version 1)
Quarter: 2012Q4

REPORT INFORMATION
  Report Type: 
  Country: US (occurrence: US)
  Receive Date: 20120920
  Receipt Date: 20120920
  Transmission Date: 20130627
  Serious: Yes (Other)
  Sender: FDA-Public Use
  Company Number: US-BAYER-2012-097328

PATIENT
  Age: 45 Year
  Sex: Female

DRUGS (15)
  1. YAZ [Suspect]
  2. ULTRAM [Concomitant]
     Dosage: 50 mg, UNK
     Route: 048
  3. SYNTHROID [Concomitant]
     Route: 048
  4. LYRICA [Concomitant]
     Dosage: 50 mg, UNK
     Route: 048
  5. PRISTIQ [Concomitant]
     Route: 048
  6. TOPAMAX [Concomitant]
     Route: 048
  7. BUTALBITAL COMPOUND [Concomitant]
     Route: 048
  8. BUTALBITAL W/ASPIRIN,CAFFEINE [Concomitant]
     Dosage: 50-325 mg, as needed
     Route: 048
  9. DIAZEPAM [Concomitant]
     Dosage: 5 mg, UNK
     Route: 048
  10. HYDROCODONE W/ACETAMINOPHEN [Concomitant]
     Indication: PAIN
     Dosage: 10-325 mg as needed
     Route: 048
  11. LIDODERM [Concomitant]
     Dosage: 5 % apply to affected area daily
  12. TIZANIDINE [Concomitant]
     Dosage: 4 mg, BID
     Route: 048
  13. TOPIRAMATE [Concomitant]
     Dosage: 100 mg, BID
     Route: 048
  14. ONDANSETRON [Concomitant]
     Indication: NAUSEA
     Dosage: 4 mg,every 608 hours as needed
     Route: 048
  15. VITAMIN D [Concomitant]
     Route: 048

REACTIONS (1)
  - Deep vein thrombosis [Recovered/Resolved]
